FAERS Safety Report 4382019-2 (Version None)
Quarter: 2004Q2

REPORT INFORMATION
  Report Type: 
  Country: None (occurrence: None)
  Receive Date: 20040615
  Receipt Date: 20040607
  Transmission Date: 20050107
  Serious: Yes (Life-Threatening)
  Sender: FDA-Public Use
  Company Number: HQWYE118926MAY04

PATIENT
  Age: 69 Year
  Sex: Male

DRUGS (9)
  1. ANCARON (AMIODARONE, TABLET) [Suspect]
     Indication: VENTRICULAR TACHYCARDIA
     Dosage: 400 MG 1X PER 1 DAY ORAL
     Route: 048
     Dates: start: 20040424, end: 20040430
  2. ANCARON (AMIODARONE, TABLET) [Suspect]
     Dosage: 200 MG 1X PER 1 DAY ORAL
     Route: 048
     Dates: start: 20040501, end: 20040510
  3. ANCARON (AMIODARONE, TABLET) [Suspect]
     Dosage: 100 MG 1X PER 1 DAY ORAL
     Route: 048
     Dates: start: 20040511
  4. LOCHOL (FLUVASTATIN SODIUM) [Concomitant]
  5. NORVASC [Concomitant]
  6. DIOVAN [Concomitant]
  7. FAMOTIDINE [Concomitant]
  8. ISOSORBIDE DINITRATE [Concomitant]
  9. CARVEDILOL [Concomitant]

REACTIONS (2)
  - ELECTROCARDIOGRAM QRS COMPLEX PROLONGED [None]
  - ELECTROCARDIOGRAM QT PROLONGED [None]
